FAERS Safety Report 4687665-4 (Version None)
Quarter: 2005Q2

REPORT INFORMATION
  Report Type: 
  Country: None (occurrence: None)
  Receive Date: 20050610
  Receipt Date: 20050502
  Transmission Date: 20051028
  Serious: Yes (Death)
  Sender: FDA-Public Use
  Company Number: ZA-BOEHRINGER INGELHEIM PHARMACEUTICALS, INC.-2005-DE-01647GD

PATIENT
  Sex: Female

DRUGS (2)
  1. TRIOMUNE [Suspect]
     Indication: ACQUIRED IMMUNODEFICIENCY SYNDROME
     Route: 048
  2. TRIOMUNE [Suspect]
     Indication: KAPOSI'S SARCOMA AIDS RELATED

REACTIONS (2)
  - DRUG HYPERSENSITIVITY [None]
  - HEPATIC FAILURE [None]
